FAERS Safety Report 9561819 (Version 1)
Quarter: 2013Q3

REPORT INFORMATION
  Report Type: Spontaneous
  Country: US (occurrence: US)
  Receive Date: 20130927
  Receipt Date: 20130927
  Transmission Date: 20140515
  Serious: No
  Sender: FDA-Public Use
  Company Number: US-BIOGENIDEC-2013BI063482

PATIENT
  Age: 56 Year
  Sex: Female

DRUGS (4)
  1. TECFIDERA [Suspect]
     Indication: MULTIPLE SCLEROSIS
     Route: 048
     Dates: start: 20130617
  2. CYCLOBENZAPRINE HCL [Concomitant]
  3. MECLIZINE HCL [Concomitant]
  4. OXYCODONE HCL [Concomitant]

REACTIONS (4)
  - Dizziness [Unknown]
  - Fatigue [Unknown]
  - Abdominal pain upper [Unknown]
  - Back pain [Unknown]
